FAERS Safety Report 6400114-0 (Version None)
Quarter: 2009Q4

REPORT INFORMATION
  Report Type: 
  Country: None (occurrence: None)
  Receive Date: 20091014
  Receipt Date: 20091006
  Transmission Date: 20100525
  Serious: Yes (Death)
  Sender: FDA-Public Use
  Company Number: IE-CVT-090679

PATIENT

DRUGS (2)
  1. RANEXA [Suspect]
     Indication: DRUG USE FOR UNKNOWN INDICATION
  2. CORDARONE [Suspect]

REACTIONS (2)
  - DEATH [None]
  - DRUG INTERACTION [None]
